FAERS Safety Report 7380642-4 (Version None)
Quarter: 2011Q1

REPORT INFORMATION
  Report Type: 
  Country: None (occurrence: None)
  Receive Date: 20110329
  Receipt Date: 20110315
  Transmission Date: 20110831
  Serious: Yes (Other)
  Sender: FDA-Public Use
  Company Number: IT-CELGENEUS-083-21880-11031877

PATIENT
  Sex: Male

DRUGS (2)
  1. DEXAMETHASONE [Concomitant]
     Dosage: 40 MILLIGRAM
     Dates: start: 20090501, end: 20100601
  2. REVLIMID [Suspect]
     Dosage: 15 MILLIGRAM
     Route: 048
     Dates: start: 20090501, end: 20100601

REACTIONS (3)
  - MULTIPLE MYELOMA [None]
  - DEEP VEIN THROMBOSIS [None]
  - RENAL CELL CARCINOMA [None]
